FAERS Safety Report 11100103 (Version 1)
Quarter: 2015Q2

REPORT INFORMATION
  Report Type: Spontaneous
  Country: US (occurrence: None)
  Receive Date: 20150507
  Receipt Date: 20150507
  Transmission Date: 20150821
  Serious: No
  Sender: FDA-Public Use
  Company Number: None

PATIENT
  Age: 77 Year
  Sex: Male

DRUGS (7)
  1. XARELTO [Suspect]
     Active Substance: RIVAROXABAN
     Dates: start: 20140423, end: 20140612
  2. COUMADIN [Concomitant]
     Active Substance: WARFARIN SODIUM
  3. ZETIA [Concomitant]
     Active Substance: EZETIMIBE
  4. DIOVAN [Concomitant]
     Active Substance: VALSARTAN
  5. BYSTOLIC [Concomitant]
     Active Substance: NEBIVOLOL HYDROCHLORIDE
  6. LEVAQUIN [Concomitant]
     Active Substance: LEVOFLOXACIN
  7. CIALIS [Concomitant]
     Active Substance: TADALAFIL

REACTIONS (11)
  - Antinuclear antibody positive [None]
  - Hypersensitivity [None]
  - Cholestatic liver injury [None]
  - Pneumonia [None]
  - Malaise [None]
  - Acute kidney injury [None]
  - Gallbladder disorder [None]
  - Nephritis [None]
  - Drug-induced liver injury [None]
  - Hepatic necrosis [None]
  - Blood alkaline phosphatase increased [None]

NARRATIVE: CASE EVENT DATE: 20140612
